FAERS Safety Report 24371709 (Version 1)
Quarter: 2024Q3

REPORT INFORMATION
  Report Type: Spontaneous
  Country: US (occurrence: None)
  Receive Date: 20240926
  Receipt Date: 20240926
  Transmission Date: 20241016
  Serious: Yes (Hospitalization)
  Sender: Public
  Company Number: None

PATIENT
  Age: 65 Year
  Sex: Female
  Weight: 78.3 kg

DRUGS (5)
  1. INFLECTRA [Suspect]
     Active Substance: INFLIXIMAB-DYYB
     Indication: Rheumatoid arthritis
     Dosage: OTHER FREQUENCY : 0, 2, 6 WK, Q8 WKS;?
     Route: 042
     Dates: start: 20240815, end: 20240926
  2. TYLENOL [Concomitant]
     Active Substance: ACETAMINOPHEN
     Dates: start: 20240815, end: 20240926
  3. ZYRTEC [Concomitant]
     Active Substance: CETIRIZINE HYDROCHLORIDE
     Dates: start: 20240815, end: 20240926
  4. PEPCID [Concomitant]
     Active Substance: FAMOTIDINE
     Dates: start: 20240815, end: 20240926
  5. SOLU-MEDROL [Concomitant]
     Active Substance: METHYLPREDNISOLONE SODIUM SUCCINATE
     Dates: start: 20240815, end: 20240926

REACTIONS (2)
  - Urticaria [None]
  - Flushing [None]

NARRATIVE: CASE EVENT DATE: 20240926
